FAERS Safety Report 7065797-3 (Version None)
Quarter: 2010Q4

REPORT INFORMATION
  Report Type: 
  Country: None (occurrence: None)
  Receive Date: 20101027
  Receipt Date: 20101014
  Transmission Date: 20110411
  Serious: Yes (Hospitalization, Disabling, Other)
  Sender: FDA-Public Use
  Company Number: US-ELI_LILLY_AND_COMPANY-US201009005585

PATIENT
  Sex: Female

DRUGS (10)
  1. FORTEO [Suspect]
     Indication: OSTEOPOROSIS
     Dosage: 20 UG, DAILY (1/D)
     Dates: start: 20091210, end: 20100730
  2. CITRACAL [Concomitant]
  3. ANTIHYPERTENSIVES [Concomitant]
  4. VITAMINS [Concomitant]
  5. ANTIOXIDANT /02147801/ [Concomitant]
  6. CHLOROTHIAZIDE [Concomitant]
     Dosage: 25 MG, UNK
  7. EXFORGE [Concomitant]
     Dosage: 10 MG, UNK
  8. BISOPROLOL FUMARATE [Concomitant]
     Dosage: 10 MG, UNK
  9. LEVOTHYROXINE [Concomitant]
     Dosage: 50 UG, UNK
  10. VITAMIN E [Concomitant]

REACTIONS (7)
  - BONE DISORDER [None]
  - CARDIAC PACEMAKER REPLACEMENT [None]
  - DEVICE DISLOCATION [None]
  - FALL [None]
  - FIBULA FRACTURE [None]
  - PATHOLOGICAL FRACTURE [None]
  - TIBIA FRACTURE [None]
